FAERS Safety Report 24387123 (Version 2)
Quarter: 2024Q4

REPORT INFORMATION
  Report Type: Spontaneous
  Country: US (occurrence: US)
  Receive Date: 20241002
  Receipt Date: 20241117
  Transmission Date: 20250115
  Serious: Yes (Other)
  Sender: ALEXION PHARMACEUTICALS
  Company Number: US-AstraZeneca-CH-00708097A

PATIENT

DRUGS (4)
  1. BYETTA [Suspect]
     Active Substance: EXENATIDE
     Dosage: UNK
     Route: 065
  2. BYETTA [Suspect]
     Active Substance: EXENATIDE
     Dosage: UNK
  3. BYETTA [Suspect]
     Active Substance: EXENATIDE
     Dosage: UNK
     Route: 065
  4. BYETTA [Suspect]
     Active Substance: EXENATIDE
     Dosage: UNK

REACTIONS (3)
  - Pancreatitis [Unknown]
  - Gallbladder disorder [Unknown]
  - Type 2 diabetes mellitus [Unknown]
